FAERS Safety Report 8471514-2 (Version None)
Quarter: 2012Q2

REPORT INFORMATION
  Report Type: 
  Country: None (occurrence: None)
  Receive Date: 20120627
  Receipt Date: 20120622
  Transmission Date: 20120825
  Serious: Yes (Other)
  Sender: FDA-Public Use
  Company Number: PHHY2010CA47368

PATIENT
  Sex: Female

DRUGS (8)
  1. ZOLEDRONOC ACID [Suspect]
     Dosage: 5 MG, UNK
     Dates: start: 20100831
  2. ACETAMINOPHEN [Concomitant]
     Dosage: 325 MG, PRN
     Route: 048
  3. CALCIUM [Concomitant]
     Dosage: 1000 MG, QD
     Route: 048
  4. ZOLEDRONOC ACID [Suspect]
     Indication: OSTEOPOROSIS
     Dosage: 5 MG, UNK
     Dates: start: 20090514
  5. ZOLEDRONOC ACID [Suspect]
     Dosage: UNK
     Route: 042
     Dates: start: 20110905
  6. RABEPRAZOLE SODIUM [Concomitant]
     Dosage: 20 MG, QD
     Route: 048
  7. VITAMIN D [Concomitant]
     Dosage: 2000 U, QD
     Route: 048
  8. ATENOLOL [Concomitant]
     Dosage: 25 MG, QD
     Route: 048

REACTIONS (8)
  - RED BLOOD CELL COUNT DECREASED [None]
  - MEAN CELL HAEMOGLOBIN INCREASED [None]
  - ARTHRITIS [None]
  - FEMUR FRACTURE [None]
  - RED CELL DISTRIBUTION WIDTH INCREASED [None]
  - NASOPHARYNGITIS [None]
  - HAEMOGLOBIN DECREASED [None]
  - HAEMATOCRIT DECREASED [None]
